FAERS Safety Report 8347863-5 (Version None)
Quarter: 2012Q2

REPORT INFORMATION
  Report Type: 
  Country: None (occurrence: None)
  Receive Date: 20120509
  Receipt Date: 20120426
  Transmission Date: 20120825
  Serious: Yes (Other)
  Sender: FDA-Public Use
  Company Number: US-ELI_LILLY_AND_COMPANY-US201101006799

PATIENT
  Sex: Female
  Weight: 75.283 kg

DRUGS (8)
  1. METOPROLOL TARTRATE [Concomitant]
  2. SIMVASTATIN [Concomitant]
  3. FORTEO [Suspect]
     Indication: OSTEOPOROSIS
     Dosage: 20 UG, DAILY (1/D)
     Route: 058
     Dates: start: 20101025
  4. LANTUS [Concomitant]
  5. LISINOPRIL [Concomitant]
  6. EFFEXOR [Concomitant]
  7. METFORMIN HCL [Concomitant]
  8. NOVOLOG [Concomitant]

REACTIONS (6)
  - SPINAL COLUMN STENOSIS [None]
  - ARTHRALGIA [None]
  - NERVE COMPRESSION [None]
  - BREAST CANCER IN SITU [None]
  - FOOT FRACTURE [None]
  - BONE PAIN [None]
